FAERS Safety Report 24014017 (Version 1)
Quarter: 2024Q2

REPORT INFORMATION
  Report Type: Spontaneous
  Country: BE (occurrence: BE)
  Receive Date: 20240626
  Receipt Date: 20240626
  Transmission Date: 20240716
  Serious: Yes (Other)
  Sender: FDA-Public Use
  Company Number: BE-009507513-2311BEL000233

PATIENT
  Age: 13 Year
  Sex: Female

DRUGS (20)
  1. KEYTRUDA [Suspect]
     Active Substance: PEMBROLIZUMAB
     Indication: Ovarian cancer stage IV
     Dosage: 200 MILLIGRAM, Q3W
     Dates: start: 20231102, end: 202406
  2. CISPLATIN [Suspect]
     Active Substance: CISPLATIN
     Indication: Ovarian cancer stage IV
     Dosage: ONCE (BEP TREATMENT)
     Dates: start: 20230831
  3. CISPLATIN [Suspect]
     Active Substance: CISPLATIN
     Dosage: 100 MILLIGRAM/SQ. METER, ONCE (CYCLE 1)
     Dates: start: 2023
  4. CISPLATIN [Suspect]
     Active Substance: CISPLATIN
     Dosage: 80 MILLIGRAM/SQ. METER, Q3W (CYCLE 2)
     Dates: start: 20230921
  5. CISPLATIN [Suspect]
     Active Substance: CISPLATIN
     Dosage: 80 MILLIGRAM/SQ. METER, Q3W (CYCLE 3)
     Dates: start: 20231012
  6. CISPLATIN [Suspect]
     Active Substance: CISPLATIN
     Dosage: 80 MILLIGRAM/SQ. METER, Q3W (CYCLE 4)
     Dates: start: 20231102
  7. DOXORUBICIN [Suspect]
     Active Substance: DOXORUBICIN
     Indication: Ovarian cancer stage IV
     Dosage: 40 MILLIGRAM/SQ. METER, Q3W (CYCLE 1)
     Dates: start: 2023
  8. DOXORUBICIN [Suspect]
     Active Substance: DOXORUBICIN
     Dosage: 40 MILLIGRAM/SQ. METER, Q3W (CYCLE 2)
     Dates: start: 20230921
  9. DOXORUBICIN [Suspect]
     Active Substance: DOXORUBICIN
     Dosage: 40 MILLIGRAM/SQ. METER, Q3W (CYCLE 3)
     Dates: start: 20231012
  10. DOXORUBICIN [Suspect]
     Active Substance: DOXORUBICIN
     Dosage: 40 MILLIGRAM/SQ. METER, Q3W (CYCLE 4)
     Dates: start: 20231102
  11. ETOPOSIDE [Suspect]
     Active Substance: ETOPOSIDE
     Indication: Ovarian cancer stage IV
     Dosage: BEP TREATMENT
     Dates: start: 20230831
  12. ETOPOSIDE [Suspect]
     Active Substance: ETOPOSIDE
     Dosage: 75 MILLIGRAM/SQ. METER/DAY FOR 3 DAYS, EVERY 21 DAYS (CYCLICAL), CYCLE 1
     Dates: start: 2023
  13. ETOPOSIDE [Suspect]
     Active Substance: ETOPOSIDE
     Dosage: 75 MILLIGRAM/SQ. METER/DAY FOR 3 DAYS, EVERY 21 DAYS (CYCLICAL), CYCLE 2
     Dates: start: 20230921
  14. ETOPOSIDE [Suspect]
     Active Substance: ETOPOSIDE
     Dosage: 75 MILLIGRAM/SQ. METER/DAY FOR 3 DAYS, EVERY 21 DAYS (CYCLICAL), CYCLE 3
     Dates: start: 20231012
  15. ETOPOSIDE [Suspect]
     Active Substance: ETOPOSIDE
     Dosage: 75 MILLIGRAM/SQ. METER/DAY FOR 3 DAYS, EVERY 21 DAYS(CYCLICAL), CYCLE 4
     Dates: start: 20231102
  16. CYCLOPHOSPHAMIDE [Suspect]
     Active Substance: CYCLOPHOSPHAMIDE
     Indication: Ovarian cancer stage IV
     Dosage: 300 MILLIGRAM/SQ. METER/DAY, FOR 3 DAYS EVERY 21 DAYS (CYCLICAL), CYCLE 1
     Dates: start: 2023
  17. CYCLOPHOSPHAMIDE [Suspect]
     Active Substance: CYCLOPHOSPHAMIDE
     Dosage: 300 MILLIGRAM/SQ. METER/DAY, FOR 3 DAYS EVERY 21 DAYS (CYCLICAL), CYCLE 2
     Dates: start: 20230921
  18. CYCLOPHOSPHAMIDE [Suspect]
     Active Substance: CYCLOPHOSPHAMIDE
     Dosage: 300 MILLIGRAM/SQ. METER/DAY, FOR 3 DAYS EVERY 21 DAYS (CYCLICAL), CYCLE 3
     Dates: start: 20231012
  19. CYCLOPHOSPHAMIDE [Suspect]
     Active Substance: CYCLOPHOSPHAMIDE
     Dosage: 300 MILLIGRAM/SQ. METER/DAY, FOR 3 DAYS EVERY 21 DAYS (CYCLICAL), CYCLE 4
     Dates: start: 20231102
  20. VINCRISTINE [Suspect]
     Active Substance: VINCRISTINE
     Indication: Ovarian cancer stage IV
     Dosage: 1 DOSE INSTEAD OF BLEOMYCIN
     Dates: start: 20230831

REACTIONS (3)
  - Ovarian cancer recurrent [Unknown]
  - Drug ineffective for unapproved indication [Unknown]
  - Off label use [Unknown]

NARRATIVE: CASE EVENT DATE: 20231102
